FAERS Safety Report 7285385-3 (Version None)
Quarter: 2011Q1

REPORT INFORMATION
  Report Type: 
  Country: None (occurrence: None)
  Receive Date: 20110121
  Receipt Date: 20090331
  Transmission Date: 20110831
  Serious: No
  Sender: FDA-Public Use
  Company Number: AE 2009-042

PATIENT
  Age: 55 Year
  Sex: Female

DRUGS (9)
  1. PROPRANOLOL [Concomitant]
  2. FAZACLO ODT [Suspect]
     Indication: SCHIZOAFFECTIVE DISORDER BIPOLAR TYPE
     Dosage: 300 MG QHS PO
     Route: 048
     Dates: start: 20081110
  3. GAS-X [Concomitant]
  4. AMITIZA [Concomitant]
  5. PAROXETINE HCL [Concomitant]
  6. ZYPREXA [Concomitant]
  7. LITHIUM [Concomitant]
  8. BENZTROPINE MESYLATE [Concomitant]
  9. ^ORANGE POWDERY LAXATIVE^ [Concomitant]

REACTIONS (2)
  - DYSPNOEA [None]
  - CONSTIPATION [None]
